FAERS Safety Report 10296985 (Version 1)
Quarter: 2014Q3

REPORT INFORMATION
  Report Type: Spontaneous
  Country: ZA (occurrence: ZA)
  Receive Date: 20140711
  Receipt Date: 20140711
  Transmission Date: 20150326
  Serious: Yes (Other)
  Sender: FDA-Public Use
  Company Number: ZA-ABBVIE-14K-143-1257703-00

PATIENT
  Age: 74 Year
  Sex: Male

DRUGS (2)
  1. EPILIM [Suspect]
     Active Substance: VALPROATE SODIUM
     Indication: INSOMNIA
     Dosage: AT BEDTIME
     Route: 048
     Dates: start: 201406
  2. EPILIM [Suspect]
     Active Substance: VALPROATE SODIUM
     Indication: CONFUSIONAL STATE

REACTIONS (2)
  - Deafness [Recovered/Resolved]
  - Parkinson^s disease [Unknown]

NARRATIVE: CASE EVENT DATE: 201406
